FAERS Safety Report 25927467 (Version 1)
Quarter: 2025Q4

REPORT INFORMATION
  Report Type: Spontaneous
  Country: US (occurrence: US)
  Receive Date: 20251015
  Receipt Date: 20251015
  Transmission Date: 20260118
  Serious: No
  Sender: AMGEN
  Company Number: US-AMGEN-USASP2025202183

PATIENT

DRUGS (1)
  1. MVASI [Suspect]
     Active Substance: BEVACIZUMAB-AWWB
     Indication: Product used for unknown indication
     Dosage: UNK (DOSE ORDERED: 700 MILLIGRAM), 400 MG X 1 VIAL, 100 MG X 3 VIALS
     Route: 065

REACTIONS (1)
  - Platelet count decreased [Unknown]
